FAERS Safety Report 9008844 (Version 2)
Quarter: 2013Q1

REPORT INFORMATION
  Report Type: Spontaneous
  Country: US (occurrence: US)
  Receive Date: 20130111
  Receipt Date: 20130118
  Transmission Date: 20140127
  Serious: Yes (Hospitalization, Other)
  Sender: FDA-Public Use
  Company Number: US-GILEAD-2013-0067714

PATIENT
  Age: 12 None
  Sex: Female

DRUGS (3)
  1. LETAIRIS [Suspect]
     Indication: PULMONARY ARTERIAL HYPERTENSION
     Dosage: 5 MG, QD
     Route: 048
     Dates: start: 20100114
  2. ADCIRCA [Concomitant]
  3. REVATIO [Concomitant]

REACTIONS (3)
  - Catheterisation cardiac [Unknown]
  - Cyanosis [Unknown]
  - Dyspnoea [Unknown]
